FAERS Safety Report 7334106-4 (Version None)
Quarter: 2011Q1

REPORT INFORMATION
  Report Type: 
  Country: None (occurrence: None)
  Receive Date: 20110307
  Receipt Date: 20110225
  Transmission Date: 20110831
  Serious: Yes (Other)
  Sender: FDA-Public Use
  Company Number: US-AMGEN-USASP2011011026

PATIENT
  Age: 33 Year
  Sex: Male

DRUGS (4)
  1. NAPROXEN SODIUM [Concomitant]
     Dosage: UNK
  2. HUMIRA [Suspect]
     Indication: RHEUMATOID ARTHRITIS
     Dosage: 40 MG, Q2WK
     Dates: start: 20080101, end: 20110128
  3. ENBREL [Suspect]
     Indication: PRODUCT USED FOR UNKNOWN INDICATION
  4. CELECOXIB [Concomitant]
     Dosage: UNK
     Dates: end: 19800201

REACTIONS (4)
  - CEREBRAL HAEMORRHAGE [None]
  - HEADACHE [None]
  - CEREBRAL HAEMATOMA [None]
  - DIZZINESS [None]
